FAERS Safety Report 15423684 (Version 3)
Quarter: 2019Q2

REPORT INFORMATION
  Report Type: Spontaneous
  Country: US (occurrence: US)
  Receive Date: 20180925
  Receipt Date: 20190409
  Transmission Date: 20190711
  Serious: No
  Sender: FDA-Public Use
  Company Number: US-PFIZER INC-2018385014

PATIENT
  Age: 72 Year
  Sex: Female
  Weight: 58.97 kg

DRUGS (3)
  1. LYRICA [Suspect]
     Active Substance: PREGABALIN
     Indication: NEURALGIA
     Dosage: 1 DF, DAILY (TAKES 1 CAPSULE DAILY CONTINUOUSLY)
  2. LYRICA [Suspect]
     Active Substance: PREGABALIN
     Indication: OSTEOPOROSIS
  3. LYRICA [Suspect]
     Active Substance: PREGABALIN
     Indication: OSTEOARTHRITIS
     Dosage: 50 MG (TWICE DAILY TO 3 TIMES DAILY), AS NEEDED
     Route: 048
     Dates: start: 201901

REACTIONS (3)
  - Malaise [Unknown]
  - Product use issue [Unknown]
  - Drug ineffective for unapproved indication [Unknown]
